FAERS Safety Report 21978373 (Version 2)
Quarter: 2023Q1

REPORT INFORMATION
  Report Type: Other
  Country: CN (occurrence: None)
  Receive Date: 20230210
  Receipt Date: 20230227
  Transmission Date: 20230417
  Serious: Yes (Other)
  Sender: FDA-Public Use
  Company Number: CN-ROCHE-2073020

PATIENT
  Age: 62 Year
  Sex: Female
  Weight: 54 kg

DRUGS (2)
  1. AVASTIN [Suspect]
     Active Substance: BEVACIZUMAB
     Indication: Colorectal cancer
     Route: 041
     Dates: start: 20170711, end: 20180110
  2. AVASTIN [Suspect]
     Active Substance: BEVACIZUMAB
     Indication: Colon cancer
     Route: 041
     Dates: end: 20220914

REACTIONS (12)
  - Pulmonary mass [Not Recovered/Not Resolved]
  - Hypoaesthesia [Unknown]
  - Swelling [Unknown]
  - Nasopharyngitis [Unknown]
  - Nasopharyngitis [Unknown]
  - Discomfort [Unknown]
  - Inflammation [Unknown]
  - Localised infection [Unknown]
  - Nasopharyngitis [Unknown]
  - Cough [Unknown]
  - Nodule [Not Recovered/Not Resolved]
  - Coronavirus test positive [Unknown]

NARRATIVE: CASE EVENT DATE: 20211218
